FAERS Safety Report 7000694-0 (Version None)
Quarter: 2010Q3

REPORT INFORMATION
  Report Type: 
  Country: None (occurrence: None)
  Receive Date: 20100920
  Receipt Date: 20100208
  Transmission Date: 20110219
  Serious: No
  Sender: FDA-Public Use
  Company Number: US-ASTRAZENECA-2009SE33228

PATIENT
  Age: 515 Month
  Sex: Female
  Weight: 103.9 kg

DRUGS (3)
  1. SEROQUEL [Suspect]
     Indication: SCHIZOPHRENIA
     Route: 048
     Dates: start: 20030101
  2. ZYPREXA [Concomitant]
     Indication: SCHIZOPHRENIA
     Dates: start: 20040101, end: 20060401
  3. ABILIFY [Concomitant]
     Dates: start: 20091001

REACTIONS (2)
  - OBESITY [None]
  - TYPE 2 DIABETES MELLITUS [None]
